FAERS Safety Report 23427984 (Version 3)
Quarter: 2025Q1

REPORT INFORMATION
  Report Type: Report from Study
  Country: TH (occurrence: TH)
  Receive Date: 20240122
  Receipt Date: 20250124
  Transmission Date: 20250409
  Serious: Yes (Other)
  Sender: BAYER HEALTHCARE PHARMACEUTICALS INC.
  Company Number: TH-BAYER-2024A010998

PATIENT
  Age: 67 Year
  Sex: Male

DRUGS (6)
  1. STIVARGA [Suspect]
     Active Substance: REGORAFENIB MONOHYDRATE
     Indication: Gastrointestinal stromal tumour
     Dosage: 80 MG, BID
     Route: 048
     Dates: start: 20230316, end: 20230318
  2. STIVARGA [Suspect]
     Active Substance: REGORAFENIB MONOHYDRATE
     Indication: Gastrointestinal stromal tumour
     Dosage: 40 MG, QD
     Route: 048
     Dates: start: 20230319
  3. STIVARGA [Suspect]
     Active Substance: REGORAFENIB MONOHYDRATE
     Indication: Gastrointestinal stromal tumour
     Dosage: 40 MG, QD FOR 14 DAYS, FOLLOWED BY A 7-DAY HOLD
     Route: 048
     Dates: start: 20240308
  4. STIVARGA [Suspect]
     Active Substance: REGORAFENIB MONOHYDRATE
     Indication: Gastrointestinal stromal tumour
     Dosage: 80 MG, QD
     Route: 048
  5. STIVARGA [Suspect]
     Active Substance: REGORAFENIB MONOHYDRATE
     Indication: Gastrointestinal stromal tumour
     Dosage: 40 MG, QD (ONE TABLET DAILY FOR THREE WEEKS, FOLLOWED BY A ONE-WEEK BREAK)
     Route: 048
  6. STIVARGA [Suspect]
     Active Substance: REGORAFENIB MONOHYDRATE
     Indication: Gastrointestinal stromal tumour
     Dosage: 40 MG, QD (ONE TABLET DAILY FOR 14 DAYS, FOLLOWED BY A SEVEN-DAY BREAK)
     Route: 048

REACTIONS (9)
  - Pain in extremity [Recovered/Resolved]
  - Gait disturbance [Recovered/Resolved]
  - Gait inability [Recovered/Resolved]
  - Eating disorder [Recovered/Resolved]
  - Oral pain [Recovered/Resolved]
  - Moaning [Recovered/Resolved]
  - Drug intolerance [None]
  - Incorrect dosage administered [None]
  - Product prescribing issue [None]

NARRATIVE: CASE EVENT DATE: 20230301
